FAERS Safety Report 4305258-5 (Version None)
Quarter: 2004Q1

REPORT INFORMATION
  Report Type: 
  Country: None (occurrence: None)
  Receive Date: 20040226
  Receipt Date: 20040122
  Transmission Date: 20041129
  Serious: No
  Sender: FDA-Public Use
  Company Number: US-BRISTOL-MYERS SQUIBB COMPANY-12485900

PATIENT
  Age: 45 Year
  Sex: Female
  Weight: 108 kg

DRUGS (3)
  1. DEFINITY [Suspect]
     Dosage: .25 CC FOLLOWED BY .1 CC 2 TO 3 MINUTES LATER.
     Route: 042
  2. ASPIRIN [Concomitant]
  3. ALBUTEROL [Concomitant]

REACTIONS (1)
  - BACK PAIN [None]
